FAERS Safety Report 8130797-9 (Version None)
Quarter: 2012Q1

REPORT INFORMATION
  Report Type: 
  Country: None (occurrence: None)
  Receive Date: 20120213
  Receipt Date: 20120203
  Transmission Date: 20120608
  Serious: No
  Sender: FDA-Public Use
  Company Number: US-BIOGENIDEC-2012BI004578

PATIENT
  Age: 47 Year
  Sex: Female

DRUGS (2)
  1. AVONEX [Concomitant]
     Indication: MULTIPLE SCLEROSIS
     Route: 030
  2. TYSABRI [Suspect]
     Indication: MULTIPLE SCLEROSIS
     Route: 042
     Dates: start: 20061025, end: 20110411

REACTIONS (7)
  - FEELING HOT [None]
  - BALANCE DISORDER [None]
  - VERTIGO [None]
  - DISORIENTATION [None]
  - SENSORY DISTURBANCE [None]
  - FALL [None]
  - FIBROMYALGIA [None]
